FAERS Safety Report 6540770-X (Version None)
Quarter: 2010Q1

REPORT INFORMATION
  Report Type: 
  Country: None (occurrence: None)
  Receive Date: 20100118
  Receipt Date: 20100112
  Transmission Date: 20100710
  Serious: Yes (Other)
  Sender: FDA-Public Use
  Company Number: US-BAYER-200936501NA

PATIENT
  Age: 32 Year
  Sex: Female

DRUGS (6)
  1. MIRENA [Suspect]
     Indication: CONTRACEPTION
     Dosage: AS USED: 20 ?G
     Route: 015
     Dates: start: 20090924
  2. FISH OIL [Concomitant]
  3. VITAMIN B COMPLEX CAP [Concomitant]
  4. GLUCOSAMINE [Concomitant]
  5. CALCIUM AND VITAMIN D [Concomitant]
  6. MULTI-VITAMINS [Concomitant]

REACTIONS (2)
  - RETINAL ARTERY THROMBOSIS [None]
  - VISUAL FIELD DEFECT [None]
